FAERS Safety Report 6406073-9 (Version None)
Quarter: 2009Q4

REPORT INFORMATION
  Report Type: 
  Country: None (occurrence: None)
  Receive Date: 20091019
  Receipt Date: 20091006
  Transmission Date: 20100525
  Serious: Yes (Hospitalization, Other)
  Sender: FDA-Public Use
  Company Number: CH-ELI_LILLY_AND_COMPANY-CH200910001713

PATIENT
  Weight: 2.51 kg

DRUGS (9)
  1. ZYPREXA [Suspect]
     Indication: BIPOLAR DISORDER
     Dosage: 10 MG, UNK
     Route: 064
     Dates: end: 20080902
  2. METHADONE HYDROCHLORIDE [Concomitant]
     Indication: ABNORMAL BEHAVIOUR
     Dosage: 60 MG, DAILY (1/D)
     Route: 064
     Dates: start: 20050101, end: 20090428
  3. TEMESTA [Concomitant]
     Dosage: 2.5 MG, DAILY (1/D)
     Route: 064
  4. COCAINE [Concomitant]
     Indication: ABNORMAL BEHAVIOUR
     Route: 064
  5. DEPAKINE CHRONO /01294701/ [Concomitant]
     Indication: BIPOLAR DISORDER
     Dosage: 600 MG, 2/D
     Route: 064
     Dates: end: 20080902
  6. CITALOPRAM HYDROBROMIDE [Concomitant]
     Indication: BIPOLAR DISORDER
     Dosage: 60 MG, DAILY (1/D)
     Route: 064
     Dates: end: 20080902
  7. SEROQUEL [Concomitant]
     Indication: BIPOLAR DISORDER
     Dosage: 150 MG, DAILY (1/D)
     Route: 064
     Dates: end: 20080902
  8. ANTABUSE [Concomitant]
     Indication: ALCOHOL USE
     Dosage: UNK UNK, DAILY (1/D)
     Route: 064
     Dates: end: 20080923
  9. DIAMORPHINE [Concomitant]
     Indication: ABNORMAL BEHAVIOUR
     Dosage: UNK, UNK
     Route: 064
     Dates: start: 20040101, end: 20080101

REACTIONS (4)
  - DRUG EXPOSURE DURING PREGNANCY [None]
  - DRUG WITHDRAWAL SYNDROME NEONATAL [None]
  - FOETAL GROWTH RETARDATION [None]
  - NEONATAL RESPIRATORY DISTRESS SYNDROME [None]
